FAERS Safety Report 5895808-X (Version None)
Quarter: 2008Q3

REPORT INFORMATION
  Report Type: 
  Country: None (occurrence: None)
  Receive Date: 20080820
  Receipt Date: 20080624
  Transmission Date: 20090109
  Serious: No
  Sender: FDA-Public Use
  Company Number: 2008SP012525

PATIENT
  Sex: Male

DRUGS (7)
  1. NOXAFIL [Suspect]
     Indication: DRUG USE FOR UNKNOWN INDICATION
  2. JARRO-DOPHILUS [Concomitant]
  3. LEVAQUIN [Concomitant]
  4. PRIMAXIN /00788801/ [Concomitant]
  5. SEPTRA [Concomitant]
  6. AMIKACIN [Concomitant]
  7. VORICONAZOLE [Concomitant]

REACTIONS (3)
  - ABDOMINAL DISTENSION [None]
  - ABDOMINAL PAIN UPPER [None]
  - CONSTIPATION [None]
